FAERS Safety Report 19271255 (Version 1)
Quarter: 2021Q2

REPORT INFORMATION
  Report Type: Spontaneous
  Country: US (occurrence: US)
  Receive Date: 20210518
  Receipt Date: 20210518
  Transmission Date: 20210717
  Serious: Yes (Other)
  Sender: FDA-Public Use
  Company Number: US-NANJING KING-FRIEND BIOCHEMICAL PHARMACEUTICAL CO. LTD.-2021NKF00046

PATIENT
  Age: 77 Year
  Sex: Male
  Weight: 117.02 kg

DRUGS (8)
  1. ASPIRIN. [Concomitant]
     Active Substance: ASPIRIN
     Dosage: 81 MG ONE TIME
     Route: 048
     Dates: start: 20210317, end: 20210317
  2. TRAMADOL. [Concomitant]
     Active Substance: TRAMADOL
  3. TYLENOL [Concomitant]
     Active Substance: ACETAMINOPHEN
     Route: 042
  4. CELECOXIB. [Concomitant]
     Active Substance: CELECOXIB
     Dosage: 100 MG
     Route: 048
     Dates: start: 20210317, end: 20210317
  5. ENOXAPARIN SODIUM. [Suspect]
     Active Substance: ENOXAPARIN SODIUM
     Dosage: 40 MG, ONCE IN THE RIGHT ABDOMEN
     Route: 058
     Dates: start: 20210317, end: 20210317
  6. ENOXAPARIN SODIUM. [Suspect]
     Active Substance: ENOXAPARIN SODIUM
     Indication: PROPHYLAXIS
  7. CELECOXIB. [Concomitant]
     Active Substance: CELECOXIB
     Dosage: 100 MG
     Route: 048
     Dates: start: 20210316, end: 20210316
  8. MORPHINE [Concomitant]
     Active Substance: MORPHINE
     Route: 042

REACTIONS (12)
  - Flatulence [Unknown]
  - Dizziness [Unknown]
  - Pallor [Unknown]
  - Therapeutic product effect increased [Unknown]
  - Gastrointestinal haemorrhage [Recovered/Resolved]
  - Postoperative ileus [Unknown]
  - Tachycardia [Unknown]
  - Abdominal pain [Unknown]
  - Blood pressure decreased [Unknown]
  - Abdominal distension [Unknown]
  - Hyperhidrosis [Unknown]
  - Anastomotic haemorrhage [Recovered/Resolved]

NARRATIVE: CASE EVENT DATE: 2021
